FAERS Safety Report 14528134 (Version 3)
Quarter: 2018Q2

REPORT INFORMATION
  Report Type: Report from Study
  Country: US (occurrence: US)
  Receive Date: 20180213
  Receipt Date: 20180411
  Transmission Date: 20180711
  Serious: Yes (Other)
  Sender: FDA-Public Use
  Company Number: US-ROCHE-2066567

PATIENT
  Sex: Male
  Weight: 83.99 kg

DRUGS (4)
  1. BUMETANIDE. [Concomitant]
     Active Substance: BUMETANIDE
     Dosage: TAKING ABOUT A MONTH AND A HALF ONGOING:YES
     Route: 048
  2. ESBRIET [Suspect]
     Active Substance: PIRFENIDONE
     Dosage: 1, 3 TIMES A DAY, LESS THAN A WEEK ONGOING:NO
     Route: 048
     Dates: start: 201802, end: 2018
  3. ESBRIET [Suspect]
     Active Substance: PIRFENIDONE
     Indication: IDIOPATHIC PULMONARY FIBROSIS
     Dosage: ONGOING : NO?DAYS 1 TO 7 1 TABLET 3 TIMES A DAY WITH MEALS?DAYS 8 TO 14 2 TABLET 3 TIMES A DAY WITH
     Route: 048
  4. ESBRIET [Suspect]
     Active Substance: PIRFENIDONE
     Dosage: 1, ONCE A DAY FOR LESS THAN A WEEK
     Route: 048
     Dates: start: 2018, end: 2018

REACTIONS (16)
  - Abdominal pain upper [Recovered/Resolved with Sequelae]
  - Dizziness [Recovering/Resolving]
  - Diarrhoea [Recovered/Resolved]
  - Gastrointestinal pain [Recovered/Resolved]
  - Rash [Unknown]
  - Irritability [Unknown]
  - Decreased appetite [Unknown]
  - Haematochezia [Recovered/Resolved]
  - Confusional state [Unknown]
  - Fatigue [Recovering/Resolving]
  - Blister [Unknown]
  - Dyspepsia [Recovered/Resolved with Sequelae]
  - Dysuria [Recovered/Resolved]
  - Depression [Unknown]
  - Somnolence [Recovering/Resolving]
  - Pruritus [Unknown]

NARRATIVE: CASE EVENT DATE: 2018
